FAERS Safety Report 25393850 (Version 2)
Quarter: 2025Q2

REPORT INFORMATION
  Report Type: Report from Study
  Country: US (occurrence: US)
  Receive Date: 20250604
  Receipt Date: 20250621
  Transmission Date: 20250716
  Serious: Yes (Other)
  Sender: ALEXION PHARMACEUTICALS
  Company Number: US-ASTRAZENECA-202505USA026683US

PATIENT
  Age: 53 Year

DRUGS (2)
  1. STRENSIQ [Suspect]
     Active Substance: ASFOTASE ALFA
     Indication: Phosphorus metabolism disorder
     Dosage: 176 MILLIGRAM, TIW
     Route: 065
  2. LASIX [Suspect]
     Active Substance: FUROSEMIDE
     Route: 065

REACTIONS (34)
  - Diabetes mellitus inadequate control [Unknown]
  - Blood creatinine increased [Unknown]
  - Glomerular filtration rate decreased [Unknown]
  - Blood potassium decreased [Unknown]
  - Back pain [Not Recovered/Not Resolved]
  - Joint swelling [Unknown]
  - White blood cell count increased [Unknown]
  - Red blood cell count decreased [Unknown]
  - Haemoglobin decreased [Unknown]
  - Haematocrit decreased [Unknown]
  - Neutrophil count increased [Unknown]
  - Lymphocyte percentage decreased [Unknown]
  - Eosinophil percentage increased [Unknown]
  - Eosinophil count increased [Unknown]
  - Blood sodium decreased [Unknown]
  - Blood urea increased [Unknown]
  - Blood albumin decreased [Unknown]
  - Albumin globulin ratio decreased [Unknown]
  - Blood phosphorus increased [Unknown]
  - Blood cholesterol increased [Unknown]
  - Blood triglycerides increased [Unknown]
  - High density lipoprotein decreased [Unknown]
  - Non-high-density lipoprotein cholesterol increased [Unknown]
  - Low density lipoprotein increased [Unknown]
  - Albumin urine [Unknown]
  - Gout [Unknown]
  - Abdominal pain [Unknown]
  - Peripheral swelling [Unknown]
  - Injection site mass [Unknown]
  - Red cell distribution width increased [Unknown]
  - Platelet count increased [Unknown]
  - Blood chloride decreased [Unknown]
  - Blood parathyroid hormone increased [Unknown]
  - Hepatitis B antibody abnormal [Unknown]
